FAERS Safety Report 20795187 (Version 1)
Quarter: 2022Q2

REPORT INFORMATION
  Report Type: Spontaneous
  Country: US (occurrence: None)
  Receive Date: 20220505
  Receipt Date: 20220505
  Transmission Date: 20220721
  Serious: No
  Sender: FDA-Public Use
  Company Number: None

PATIENT
  Age: 56 Year
  Sex: Female
  Weight: 54 kg

DRUGS (2)
  1. OXYCODONE [Suspect]
     Active Substance: OXYCODONE
     Indication: Pancreatitis acute
     Dosage: OTHER QUANTITY : 120 TABLET(S);?FREQUENCY : EVERY 4 HOURS;?
     Route: 048
  2. OXYCODONE [Suspect]
     Active Substance: OXYCODONE
     Indication: Pain

REACTIONS (6)
  - Drug ineffective [None]
  - Nausea [None]
  - Headache [None]
  - Product substitution issue [None]
  - Malaise [None]
  - Pain [None]

NARRATIVE: CASE EVENT DATE: 20220430
